FAERS Safety Report 5242845-4 (Version None)
Quarter: 2007Q1

REPORT INFORMATION
  Report Type: 
  Country: None (occurrence: None)
  Receive Date: 20070221
  Receipt Date: 20070208
  Transmission Date: 20070707
  Serious: Yes (Other)
  Sender: FDA-Public Use
  Company Number: FR-PFIZER INC-2007009606

PATIENT
  Age: 73 Year
  Sex: Male

DRUGS (1)
  1. SUTENT [Suspect]
     Dates: start: 20061211, end: 20070103

REACTIONS (7)
  - ANOREXIA [None]
  - ASTHENIA [None]
  - CHOLESTASIS [None]
  - FATIGUE [None]
  - LYMPHOPENIA [None]
  - RECTAL HAEMORRHAGE [None]
  - WEIGHT DECREASED [None]
